FAERS Safety Report 10402635 (Version 1)
Quarter: 2014Q3

REPORT INFORMATION
  Report Type: Spontaneous
  Country: US (occurrence: None)
  Receive Date: 20140821
  Receipt Date: 20140821
  Transmission Date: 20150326
  Serious: No
  Sender: FDA-Public Use
  Company Number: None

PATIENT
  Age: 60 Year
  Sex: Male

DRUGS (2)
  1. OTEZLA [Suspect]
     Active Substance: APREMILAST
     Indication: PSORIATIC ARTHROPATHY
     Dosage: 1 PILL BID ORAL
     Route: 048
  2. INDOMETHACIN. [Concomitant]
     Active Substance: INDOMETHACIN

REACTIONS (2)
  - Poor quality sleep [None]
  - Pain [None]

NARRATIVE: CASE EVENT DATE: 20140820
